FAERS Safety Report 9871017 (Version 1)
Quarter: 2014Q1

REPORT INFORMATION
  Report Type: Spontaneous
  Country: US (occurrence: None)
  Receive Date: 20140203
  Receipt Date: 20140203
  Transmission Date: 20141002
  Serious: Yes (Other)
  Sender: FDA-Public Use
  Company Number: AUR-APL-2014-00935

PATIENT
  Sex: Female

DRUGS (6)
  1. CITALOPRAM [Suspect]
     Indication: PRODUCT USED FOR UNKNOWN INDICATION
  2. GLIMEPIRIDE (GLIMEPIRIDE) [Suspect]
     Indication: PRODUCT USED FOR UNKNOWN INDICATION
  3. ATENOLOL (ATENOLOL) [Suspect]
     Indication: PRODUCT USED FOR UNKNOWN INDICATION
  4. DIAZEPAM [Suspect]
     Indication: PRODUCT USED FOR UNKNOWN INDICATION
  5. POTASSIUM CHLORIDE (POTASSIUM CHLORIDE) [Suspect]
     Indication: PRODUCT USED FOR UNKNOWN INDICATION
  6. WARFARIN (WARFARIN) [Suspect]
     Indication: PRODUCT USED FOR UNKNOWN INDICATION

REACTIONS (1)
  - Toxicity to various agents [None]
